FAERS Safety Report 8570372-5 (Version None)
Quarter: 2012Q3

REPORT INFORMATION
  Report Type: 
  Country: None (occurrence: None)
  Receive Date: 20120803
  Receipt Date: 20120723
  Transmission Date: 20120928
  Serious: Yes (Other)
  Sender: FDA-Public Use
  Company Number: US-ELI_LILLY_AND_COMPANY-US201207007180

PATIENT
  Sex: Female
  Weight: 115.19 kg

DRUGS (5)
  1. LISINOPRIL                              /USA/ [Concomitant]
     Indication: HYPERTENSION
     Dosage: 10 MG, QD
     Route: 048
  2. TRIAMTERENE [Concomitant]
     Dosage: UNK
  3. METFORMIN HYDROCHLORIDE [Concomitant]
     Indication: TYPE 2 DIABETES MELLITUS
  4. BYETTA [Suspect]
     Indication: TYPE 2 DIABETES MELLITUS
     Dosage: 5 UG, BID
     Route: 058
  5. BYETTA [Suspect]
     Dosage: 10 UG, BID
     Route: 058

REACTIONS (5)
  - RENAL FAILURE [None]
  - BLOOD CREATININE INCREASED [None]
  - VOMITING [None]
  - NAUSEA [None]
  - GLOMERULAR FILTRATION RATE DECREASED [None]
